FAERS Safety Report 17693492 (Version 1)
Quarter: 2020Q2

REPORT INFORMATION
  Report Type: Spontaneous
  Country: US (occurrence: US)
  Receive Date: 20200422
  Receipt Date: 20200422
  Transmission Date: 20200714
  Serious: No
  Sender: FDA-Public Use
  Company Number: None

PATIENT
  Age: 43 Year
  Sex: Female
  Weight: 75.7 kg

DRUGS (19)
  1. INCRUSE ELLIPTA [Concomitant]
     Active Substance: UMECLIDINIUM BROMIDE
     Dates: start: 20180421
  2. TIZANIDINE 4MG [Concomitant]
     Active Substance: TIZANIDINE
     Dates: start: 20170525
  3. AZELASTINE 137MCG NASAL SPRAY [Concomitant]
  4. LOPERAMIDE 2MG [Concomitant]
     Active Substance: LOPERAMIDE
  5. FERATE 240 [Concomitant]
  6. MAGNESIUM 100MG [Concomitant]
     Dates: start: 20161011
  7. ONDANSETRON 4MG ODT [Concomitant]
     Dates: start: 20180124
  8. AIMOVIG [Concomitant]
     Active Substance: ERENUMAB-AOOE
     Dates: start: 20180805
  9. HYOSCYAMINE 0.125MG SUBLINGUAL [Concomitant]
     Active Substance: HYOSCYAMINE
  10. LEVOCETIRIZINE 5MG [Concomitant]
     Active Substance: LEVOCETIRIZINE
     Dates: start: 20190528
  11. FAMOTIDINE 20MG [Concomitant]
     Active Substance: FAMOTIDINE
     Dates: start: 20180601
  12. SYMBICORT 160-45MCG [Concomitant]
     Dates: start: 20180421
  13. VENTOLIN 90MCG HFA [Concomitant]
  14. FASENRA [Suspect]
     Active Substance: BENRALIZUMAB
  15. BACLOFEN 5MG [Concomitant]
     Dates: start: 20190418
  16. SYSTA NE EYE DROPS [Concomitant]
     Dates: start: 20180611
  17. ARMOUR THYROID [Concomitant]
     Active Substance: THYROID, PORCINE
     Dates: start: 20170127
  18. RIZATRIPTAN 10MG [Concomitant]
     Active Substance: RIZATRIPTAN
  19. TRINTELLIX [Concomitant]
     Active Substance: VORTIOXETINE HYDROBROMIDE
     Dates: start: 20190418

REACTIONS (4)
  - Fatigue [None]
  - Poor quality sleep [None]
  - Infusion related reaction [None]
  - Somnolence [None]

NARRATIVE: CASE EVENT DATE: 20200220
